FAERS Safety Report 21615390 (Version 2)
Quarter: 2023Q4

REPORT INFORMATION
  Report Type: Spontaneous
  Country: JP (occurrence: JP)
  Receive Date: 20221118
  Receipt Date: 20231209
  Transmission Date: 20240110
  Serious: Yes (Hospitalization, Other)
  Sender: FDA-Public Use
  Company Number: JP-ELI_LILLY_AND_COMPANY-JP202209000196

PATIENT
  Age: 71 Year
  Sex: Male
  Weight: 61 kg

DRUGS (6)
  1. NECITUMUMAB [Suspect]
     Active Substance: NECITUMUMAB
     Indication: Squamous cell carcinoma of lung
     Dosage: 800 NG, UNKNOWN
     Route: 041
     Dates: start: 20211220, end: 20221024
  2. GEMCITABINE HYDROCHLORIDE [Suspect]
     Active Substance: GEMCITABINE HYDROCHLORIDE
     Indication: Squamous cell carcinoma of lung
     Dosage: 2051 MG, UNKNOWN
     Route: 041
     Dates: start: 20211220, end: 20220318
  3. CISPLATIN [Concomitant]
     Active Substance: CISPLATIN
     Indication: Squamous cell carcinoma of lung
     Dosage: 123 MG, UNKNOWN
     Route: 041
     Dates: start: 20211220, end: 20220318
  4. TEPRENONE [Concomitant]
     Active Substance: TEPRENONE
     Indication: Interstitial lung disease
     Dosage: UNK
     Route: 048
     Dates: start: 20211227, end: 20220104
  5. NEXIUM [Concomitant]
     Active Substance: ESOMEPRAZOLE MAGNESIUM
     Indication: Prophylaxis against gastrointestinal ulcer
     Dosage: UNK
     Route: 048
     Dates: start: 20211227
  6. VIBRAMYCIN [DOXYCYCLINE HYDROCHLORIDE] [Concomitant]
     Indication: Skin disorder prophylaxis
     Dosage: UNK
     Route: 048
     Dates: start: 20211227, end: 20220325

REACTIONS (9)
  - Decreased appetite [Recovered/Resolved]
  - Nausea [Unknown]
  - Febrile neutropenia [Unknown]
  - Neutropenia [Recovered/Resolved]
  - Diarrhoea [Unknown]
  - White blood cell count decreased [Unknown]
  - Decreased appetite [Unknown]
  - Hypomagnesaemia [Recovered/Resolved]
  - Dermatitis acneiform [Unknown]

NARRATIVE: CASE EVENT DATE: 20220105
